FAERS Safety Report 24673374 (Version 1)
Quarter: 2024Q4

REPORT INFORMATION
  Report Type: Spontaneous
  Country: FR (occurrence: FR)
  Receive Date: 20241128
  Receipt Date: 20241128
  Transmission Date: 20250114
  Serious: Yes (Other)
  Sender: AMGEN
  Company Number: FR-AMGEN-FRASP2024229272

PATIENT
  Age: 58 Year
  Sex: Male

DRUGS (2)
  1. TEPEZZA [Suspect]
     Active Substance: TEPROTUMUMAB-TRBW
     Indication: Graves^ disease
     Dosage: 430 MILLIGRAM 13 CYCLES OF TOCILIZUMAB WITHOUT COMPLICATION
     Route: 040
     Dates: start: 202207
  2. TEPEZZA [Suspect]
     Active Substance: TEPROTUMUMAB-TRBW
     Dosage: 800 MILLIGRAM 13 CYCLES OF TOCILIZUMAB WITHOUT COMPLICATION
     Route: 040
     Dates: start: 202301, end: 202308

REACTIONS (1)
  - Oral herpes [Recovered/Resolved]

NARRATIVE: CASE EVENT DATE: 20240620
